FAERS Safety Report 8274690-X (Version None)
Quarter: 2012Q2

REPORT INFORMATION
  Report Type: 
  Country: None (occurrence: None)
  Receive Date: 20120411
  Receipt Date: 20120330
  Transmission Date: 20120825
  Serious: Yes (Hospitalization, Other)
  Sender: FDA-Public Use
  Company Number: JP-CELGENEUS-087-21880-11043163

PATIENT
  Sex: Male

DRUGS (2)
  1. REVLIMID [Suspect]
     Indication: MULTIPLE MYELOMA
     Dosage: 25 MILLIGRAM
     Route: 048
     Dates: start: 20101014, end: 20101103
  2. DEXAMETHASONE ACETATE [Suspect]
     Indication: MULTIPLE MYELOMA
     Route: 048

REACTIONS (6)
  - MENINGITIS LISTERIA [None]
  - URINARY RETENTION [None]
  - PANCYTOPENIA [None]
  - ATRIAL FIBRILLATION [None]
  - DIABETES INSIPIDUS [None]
  - PLEURAL EFFUSION [None]
